FAERS Safety Report 16892426 (Version 11)
Quarter: 2020Q4

REPORT INFORMATION
  Report Type: Report from Study
  Country: FR (occurrence: FR)
  Receive Date: 20191007
  Receipt Date: 20201103
  Transmission Date: 20210113
  Serious: Yes (Hospitalization)
  Sender: FDA-Public Use
  Company Number: FR-EISAI MEDICAL RESEARCH-EC-2019-063221

PATIENT
  Age: 78 Year
  Sex: Female
  Weight: 66 kg

DRUGS (15)
  1. PEMBROLIZUMAB. [Suspect]
     Active Substance: PEMBROLIZUMAB
     Indication: ENDOMETRIAL CANCER
     Route: 041
     Dates: start: 20190812, end: 20190902
  2. PEMBROLIZUMAB. [Suspect]
     Active Substance: PEMBROLIZUMAB
     Route: 041
     Dates: start: 20190923, end: 20190923
  3. LEVOTHYROX [Concomitant]
     Active Substance: LEVOTHYROXINE
     Dates: start: 20190712
  4. DIFFU-K [Concomitant]
     Active Substance: POTASSIUM CHLORIDE
     Route: 042
     Dates: start: 20190917, end: 20190917
  5. SKENAN [Concomitant]
     Active Substance: MORPHINE SULFATE
     Dates: start: 20190812, end: 20190922
  6. ACTISKENAN [Concomitant]
     Active Substance: MORPHINE SULFATE
     Dates: start: 20190812
  7. ACETAMINOPHEN. [Concomitant]
     Active Substance: ACETAMINOPHEN
     Dates: start: 20190812
  8. LEXOMIL [Concomitant]
     Active Substance: BROMAZEPAM
     Dates: start: 201907
  9. PRIMPERAN [Concomitant]
     Active Substance: METOCLOPRAMIDE HYDROCHLORIDE
     Route: 042
     Dates: start: 20190916, end: 20190918
  10. LENVATINIB [Suspect]
     Active Substance: LENVATINIB
     Indication: ENDOMETRIAL CANCER
     Route: 048
     Dates: start: 20190812
  11. PARIET [Concomitant]
     Active Substance: RABEPRAZOLE SODIUM
     Dates: start: 201907
  12. XARELTO [Concomitant]
     Active Substance: RIVAROXABAN
     Dates: start: 20190712, end: 20190930
  13. PRAVASTATIN. [Concomitant]
     Active Substance: PRAVASTATIN
     Dates: start: 201907
  14. SOTALEX [Concomitant]
     Active Substance: SOTALOL
     Dates: start: 20190712
  15. LASILIX [Concomitant]
     Active Substance: FUROSEMIDE
     Dates: start: 201907

REACTIONS (1)
  - Uterine haemorrhage [Recovered/Resolved]

NARRATIVE: CASE EVENT DATE: 20190928
